FAERS Safety Report 10966458 (Version 2)
Quarter: 2015Q2

REPORT INFORMATION
  Report Type: Spontaneous
  Country: US (occurrence: US)
  Receive Date: 20150330
  Receipt Date: 20150615
  Transmission Date: 20150821
  Serious: No
  Sender: FDA-Public Use
  Company Number: US-ASTRAZENECA-2015SE27344

PATIENT
  Age: 26602 Day
  Sex: Female
  Weight: 111.6 kg

DRUGS (14)
  1. BYDUREON [Suspect]
     Active Substance: EXENATIDE
     Indication: TYPE 2 DIABETES MELLITUS
     Route: 058
     Dates: start: 20150220, end: 20150311
  2. PLAVIX [Concomitant]
     Active Substance: CLOPIDOGREL BISULFATE
  3. XANAX [Concomitant]
     Active Substance: ALPRAZOLAM
     Dosage: AS REQUIRED
  4. METFORMIN [Concomitant]
     Active Substance: METFORMIN HYDROCHLORIDE
  5. LANTUS [Concomitant]
     Active Substance: INSULIN GLARGINE
  6. VITAMIN D [Concomitant]
     Active Substance: CHOLECALCIFEROL
     Dates: start: 20150115, end: 20150304
  7. ASPIRIN. [Concomitant]
     Active Substance: ASPIRIN
  8. WELCHOL [Concomitant]
     Active Substance: COLESEVELAM HYDROCHLORIDE
     Dates: start: 20150115, end: 20150304
  9. METROPROLOL [Concomitant]
     Active Substance: METOPROLOL
  10. PRAVASTATIN [Concomitant]
     Active Substance: PRAVASTATIN\PRAVASTATIN SODIUM
  11. JANUVIA [Concomitant]
     Active Substance: SITAGLIPTIN PHOSPHATE
  12. VENAFLAXINE [Concomitant]
  13. ERGO [Concomitant]
     Dates: start: 20150115, end: 20150304
  14. LANTUS [Concomitant]
     Active Substance: INSULIN GLARGINE

REACTIONS (6)
  - Injection site nodule [Not Recovered/Not Resolved]
  - Intentional product misuse [Unknown]
  - Injection site bruising [Unknown]
  - Asthma [Unknown]
  - Injection site erythema [Unknown]
  - Bronchitis [Unknown]

NARRATIVE: CASE EVENT DATE: 20150311
